FAERS Safety Report 5474491-1 (Version None)
Quarter: 2007Q3

REPORT INFORMATION
  Report Type: 
  Country: None (occurrence: None)
  Receive Date: 20070928
  Receipt Date: 20070918
  Transmission Date: 20080115
  Serious: Yes (Death)
  Sender: FDA-Public Use
  Company Number: 200709AGG00721

PATIENT
  Age: 86 Year
  Sex: Male

DRUGS (3)
  1. AGGRASTAT [Suspect]
     Indication: ACUTE MYOCARDIAL INFARCTION
     Dosage: (INTRAVENOUS BOLUS), (INTRAVENOUS DRIP)
     Route: 040
     Dates: start: 20070823, end: 20070823
  2. AGGRASTAT [Suspect]
     Indication: ACUTE MYOCARDIAL INFARCTION
     Dosage: (INTRAVENOUS BOLUS), (INTRAVENOUS DRIP)
     Route: 040
     Dates: start: 20070823, end: 20070823
  3. HEPARIN [Concomitant]

REACTIONS (4)
  - CARDIOGENIC SHOCK [None]
  - ELECTROMECHANICAL DISSOCIATION [None]
  - GASTROINTESTINAL HAEMORRHAGE [None]
  - VENTRICULAR ARRHYTHMIA [None]
